FAERS Safety Report 21550172 (Version 5)
Quarter: 2023Q2

REPORT INFORMATION
  Report Type: Spontaneous
  Country: US (occurrence: US)
  Receive Date: 20221103
  Receipt Date: 20230622
  Transmission Date: 20230721
  Serious: Yes (Hospitalization, Other)
  Sender: FDA-Public Use
  Company Number: US-PFIZER INC-PV202200095103

PATIENT
  Age: 75 Year
  Sex: Female
  Weight: 77.098 kg

DRUGS (5)
  1. BOSULIF [Suspect]
     Active Substance: BOSUTINIB MONOHYDRATE
     Indication: Chronic myeloid leukaemia
     Dosage: 200 MG
  2. BOSULIF [Suspect]
     Active Substance: BOSUTINIB MONOHYDRATE
     Dosage: 100 MG
  3. BOSULIF [Suspect]
     Active Substance: BOSUTINIB MONOHYDRATE
     Dosage: 20 MG
     Dates: start: 202211
  4. BOSULIF [Suspect]
     Active Substance: BOSUTINIB MONOHYDRATE
     Dosage: 100 MG, 2X/DAY
  5. GLUDEX [DEXAMETHASONE] [Concomitant]
     Dosage: UNK

REACTIONS (8)
  - Hernia [Recovered/Resolved]
  - Colostomy [Unknown]
  - Nervousness [Unknown]
  - White blood cell count abnormal [Recovered/Resolved]
  - Fatigue [Unknown]
  - Speech disorder [Unknown]
  - Hypoacusis [Unknown]
  - Off label use [Unknown]

NARRATIVE: CASE EVENT DATE: 20220301
